FAERS Safety Report 10144798 (Version 1)
Quarter: 2014Q2

REPORT INFORMATION
  Report Type: Spontaneous
  Country: US (occurrence: US)
  Receive Date: 20140430
  Receipt Date: 20140430
  Transmission Date: 20141212
  Serious: No
  Sender: FDA-Public Use
  Company Number: US-SA-2013SA102978

PATIENT
  Age: 71 Year
  Sex: Female

DRUGS (1)
  1. LOVENOX [Suspect]
     Indication: FACTOR V LEIDEN MUTATION
     Dosage: PRODUCT STARTED APPROXIMATELY 23-JUL-2013 AND PRODUCT STOPPED APPROXIMATELY 27-AUG-2013.
     Route: 051
     Dates: start: 201307, end: 201308

REACTIONS (2)
  - Abdominal pain [Recovering/Resolving]
  - Contusion [Not Recovered/Not Resolved]
